FAERS Safety Report 17599052 (Version 1)
Quarter: 2020Q1

REPORT INFORMATION
  Report Type: Spontaneous
  Country: US (occurrence: US)
  Receive Date: 20200330
  Receipt Date: 20200330
  Transmission Date: 20200409
  Serious: Yes (Other)
  Sender: FDA-Public Use
  Company Number: US-PFIZER INC-2020126637

PATIENT
  Age: 24 Year
  Sex: Male
  Weight: 88.45 kg

DRUGS (1)
  1. XANAX [Suspect]
     Active Substance: ALPRAZOLAM
     Indication: SEPARATION ANXIETY DISORDER
     Dosage: 2 MG, 3X/DAY
     Route: 048

REACTIONS (2)
  - Coeliac disease [Unknown]
  - Vertigo [Unknown]
